FAERS Safety Report 16899003 (Version 1)
Quarter: 2019Q4

REPORT INFORMATION
  Report Type: Spontaneous
  Country: US (occurrence: US)
  Receive Date: 20191009
  Receipt Date: 20191009
  Transmission Date: 20200122
  Serious: No
  Sender: FDA-Public Use
  Company Number: US-PFIZER INC-2019432984

PATIENT
  Age: 65 Year
  Sex: Female
  Weight: 61.23 kg

DRUGS (1)
  1. PREMARIN [Suspect]
     Active Substance: ESTROGENS, CONJUGATED
     Indication: VULVOVAGINAL DRYNESS
     Dosage: UNK UNK, 2X/WEEK
     Route: 067

REACTIONS (3)
  - Intentional product use issue [Unknown]
  - Cystitis interstitial [Unknown]
  - Expired product administered [Unknown]
